FAERS Safety Report 17042561 (Version 1)
Quarter: 2019Q4

REPORT INFORMATION
  Report Type: Spontaneous
  Country: BY (occurrence: BY)
  Receive Date: 20191118
  Receipt Date: 20191118
  Transmission Date: 20200122
  Serious: Yes (Other)
  Sender: FDA-Public Use
  Company Number: BY-JNJFOC-20191105343

PATIENT
  Age: 28 Year
  Sex: Male
  Weight: 73 kg

DRUGS (26)
  1. LINEZOLID. [Suspect]
     Active Substance: LINEZOLID
     Dosage: 600
     Route: 065
     Dates: start: 20190604, end: 20190624
  2. CLOFAZIMINE [Suspect]
     Active Substance: CLOFAZIMINE
     Indication: TUBERCULOSIS
     Dosage: 100
     Route: 048
     Dates: start: 20190524, end: 20190604
  3. TENOF EM [Concomitant]
     Indication: PRODUCT USED FOR UNKNOWN INDICATION
     Dosage: 200/300 MG
     Route: 065
     Dates: start: 20190730, end: 20190814
  4. SIRTURO [Suspect]
     Active Substance: BEDAQUILINE FUMARATE
     Route: 048
     Dates: start: 20190630, end: 20190814
  5. DELAMANID [Suspect]
     Active Substance: DELAMANID
     Indication: TUBERCULOSIS
     Dosage: 200
     Route: 065
     Dates: start: 20190524, end: 20190814
  6. LINEZOLID. [Suspect]
     Active Substance: LINEZOLID
     Indication: TUBERCULOSIS
     Dosage: 600
     Route: 065
     Dates: start: 20190524, end: 20190604
  7. LINEZOLID. [Suspect]
     Active Substance: LINEZOLID
     Dosage: 600
     Route: 065
     Dates: start: 20190624, end: 20190814
  8. AMOXICILLIN TRIHYDRATE [Suspect]
     Active Substance: AMOXICILLIN
     Indication: TUBERCULOSIS
     Dosage: 2000
     Route: 048
     Dates: start: 20190524, end: 20190724
  9. CYCLOSERINE. [Concomitant]
     Active Substance: CYCLOSERINE
     Indication: TUBERCULOSIS
     Route: 065
     Dates: start: 20190604, end: 20190624
  10. CYCLOSERINE. [Concomitant]
     Active Substance: CYCLOSERINE
     Route: 065
     Dates: start: 20190624, end: 20190730
  11. PYRIDOXINE [Concomitant]
     Active Substance: PYRIDOXINE
     Indication: PRODUCT USED FOR UNKNOWN INDICATION
     Route: 065
     Dates: start: 20190730, end: 20190814
  12. SOFOSBUVIR [Concomitant]
     Active Substance: SOFOSBUVIR
     Indication: CHRONIC HEPATITIS C
     Route: 065
     Dates: start: 20190624, end: 20190724
  13. LINEZOLID. [Suspect]
     Active Substance: LINEZOLID
     Dosage: 600
     Route: 065
     Dates: start: 20190820, end: 20190917
  14. CLOFAZIMINE [Suspect]
     Active Substance: CLOFAZIMINE
     Dosage: 100
     Route: 048
     Dates: start: 20190604, end: 20190624
  15. PYRIDOXINE [Concomitant]
     Active Substance: PYRIDOXINE
     Route: 065
     Dates: start: 20190815, end: 20190917
  16. FLUCONAZOLE. [Concomitant]
     Active Substance: FLUCONAZOLE
     Indication: PRODUCT USED FOR UNKNOWN INDICATION
     Route: 065
     Dates: start: 20190730, end: 20190814
  17. DELAMANID [Suspect]
     Active Substance: DELAMANID
     Dosage: 200
     Route: 065
     Dates: start: 20190820, end: 20190917
  18. SIRTURO [Suspect]
     Active Substance: BEDAQUILINE FUMARATE
     Indication: TUBERCULOSIS
     Dosage: 200
     Route: 048
     Dates: start: 20190524, end: 20190814
  19. SIRTURO [Suspect]
     Active Substance: BEDAQUILINE FUMARATE
     Dosage: 200
     Route: 048
     Dates: start: 20190820, end: 20190917
  20. DACLATASVIR. [Concomitant]
     Active Substance: DACLATASVIR
     Indication: CHRONIC HEPATITIS C
     Route: 065
     Dates: start: 20190624, end: 20190724
  21. COTRIMOXAZOLE [Concomitant]
     Active Substance: SULFAMETHOXAZOLE\TRIMETHOPRIM
     Route: 065
     Dates: start: 20190821, end: 20190917
  22. DOLUTEGRAVIR [Concomitant]
     Active Substance: DOLUTEGRAVIR
     Indication: PRODUCT USED FOR UNKNOWN INDICATION
     Route: 065
     Dates: start: 20190730, end: 20190814
  23. CLOFAZIMINE [Suspect]
     Active Substance: CLOFAZIMINE
     Dosage: 100
     Route: 048
     Dates: start: 20190624, end: 20190814
  24. IMIPENEM AND CILASTATIN [Suspect]
     Active Substance: CILASTATIN SODIUM\IMIPENEM
     Indication: TUBERCULOSIS
     Dosage: 2000
     Route: 042
     Dates: start: 20190524, end: 20190724
  25. MOXIFLOXACIN. [Concomitant]
     Active Substance: MOXIFLOXACIN
     Indication: TUBERCULOSIS
     Route: 065
     Dates: start: 20190724, end: 20190730
  26. COTRIMOXAZOLE [Concomitant]
     Active Substance: SULFAMETHOXAZOLE\TRIMETHOPRIM
     Indication: PRODUCT USED FOR UNKNOWN INDICATION
     Route: 065
     Dates: start: 20190630, end: 20190814

REACTIONS (4)
  - Pancreatitis chronic [Unknown]
  - Hepatic cirrhosis [Unknown]
  - Hepatotoxicity [Unknown]
  - Pyelocaliectasis [Unknown]

NARRATIVE: CASE EVENT DATE: 20190808
